FAERS Safety Report 15992923 (Version 2)
Quarter: 2019Q1

REPORT INFORMATION
  Report Type: Report from Study
  Country: ES (occurrence: ES)
  Receive Date: 20190221
  Receipt Date: 20190227
  Transmission Date: 20190418
  Serious: Yes (Death, Hospitalization)
  Sender: FDA-Public Use
  Company Number: ES-TEVA-2019-ES-1014070

PATIENT
  Age: 85 Year
  Sex: Male

DRUGS (2)
  1. ?CIDO ACETILSALIC?LICO [Interacting]
     Active Substance: ASPIRIN
     Indication: MYOCARDIAL ISCHAEMIA
     Dosage: 100 MILLIGRAM DAILY;
     Route: 048
     Dates: start: 2016, end: 20161231
  2. CLOPIDOGREL [Suspect]
     Active Substance: CLOPIDOGREL BISULFATE
     Indication: MYOCARDIAL ISCHAEMIA
     Dosage: 75 MILLIGRAM DAILY;
     Route: 048
     Dates: start: 2016, end: 20161231

REACTIONS (2)
  - Drug interaction [Unknown]
  - Rectal haemorrhage [Fatal]

NARRATIVE: CASE EVENT DATE: 20161231
